FAERS Safety Report 23303428 (Version 1)
Quarter: 2023Q4

REPORT INFORMATION
  Report Type: Spontaneous
  Country: US (occurrence: None)
  Receive Date: 20231215
  Receipt Date: 20231215
  Transmission Date: 20240110
  Serious: No
  Sender: FDA-Public Use
  Company Number: None

PATIENT
  Age: 69 Year
  Sex: Female

DRUGS (1)
  1. MYCOPHENOLATE MOFETIL [Suspect]
     Active Substance: MYCOPHENOLATE MOFETIL
     Indication: Myasthenia gravis
     Dosage: FREQUENCY : TWICE A DAY;?
     Route: 048
     Dates: start: 20231114

REACTIONS (4)
  - Nausea [None]
  - Prescribed overdose [None]
  - Illness [None]
  - Therapy change [None]

NARRATIVE: CASE EVENT DATE: 20231114
